FAERS Safety Report 19797316 (Version 1)
Quarter: 2021Q3

REPORT INFORMATION
  Report Type: Spontaneous
  Country: US (occurrence: US)
  Receive Date: 20210905
  Receipt Date: 20210905
  Transmission Date: 20211014
  Serious: No
  Sender: FDA-Public Use
  Company Number: None

PATIENT
  Age: 67 Year
  Sex: Male
  Weight: 112.5 kg

DRUGS (9)
  1. OZEMPIC [Concomitant]
     Active Substance: SEMAGLUTIDE
  2. ROVUSTATIN [Concomitant]
     Active Substance: ROSUVASTATIN
  3. TAMUSULIN [Concomitant]
  4. TRESIBA [Concomitant]
     Active Substance: INSULIN DEGLUDEC
  5. METFORMIN [Concomitant]
     Active Substance: METFORMIN HYDROCHLORIDE
  6. DAYVIGO [Suspect]
     Active Substance: LEMBOREXANT
     Indication: SLEEP DISORDER
     Dosage: ?          QUANTITY:1 TABLET(S);?
     Route: 048
     Dates: start: 20210831, end: 20210905
  7. PLAVIX [Concomitant]
     Active Substance: CLOPIDOGREL BISULFATE
  8. LISINIPROL [Concomitant]
  9. AMBIEN [Concomitant]
     Active Substance: ZOLPIDEM TARTRATE

REACTIONS (3)
  - Abnormal dreams [None]
  - Depression [None]
  - Sleep terror [None]

NARRATIVE: CASE EVENT DATE: 20210904
